FAERS Safety Report 17947544 (Version 4)
Quarter: 2021Q1

REPORT INFORMATION
  Report Type: Spontaneous
  Country: JP (occurrence: JP)
  Receive Date: 20200626
  Receipt Date: 20210121
  Transmission Date: 20210419
  Serious: Yes (Other)
  Sender: FDA-Public Use
  Company Number: JP-ROCHE-2632048

PATIENT
  Age: 51 Year
  Sex: Male
  Weight: 54 kg

DRUGS (5)
  1. RHEUMATREX [Concomitant]
     Active Substance: METHOTREXATE SODIUM
     Dosage: DOSAGE IS UNCERTAIN.
     Route: 065
     Dates: start: 201204, end: 201405
  2. PROGRAF [Concomitant]
     Active Substance: TACROLIMUS
     Dosage: DOSAGE IS UNCERTAIN.
     Route: 065
     Dates: start: 201405, end: 201407
  3. ACTEMRA [Suspect]
     Active Substance: TOCILIZUMAB
     Dosage: DOSE INTERVAL UNCERTAINTY
     Route: 058
     Dates: start: 20190423, end: 202008
  4. RIMATIL [Concomitant]
     Active Substance: BUCILLAMINE
     Dosage: DOSAGE IS UNCERTAIN.
     Route: 065
     Dates: start: 201407, end: 201410
  5. ACTEMRA [Suspect]
     Active Substance: TOCILIZUMAB
     Indication: RHEUMATOID ARTHRITIS
     Dosage: DOSE INTERVAL UNCERTAINTY
     Route: 058
     Dates: start: 20130924, end: 20160510

REACTIONS (1)
  - Colitis ulcerative [Recovering/Resolving]

NARRATIVE: CASE EVENT DATE: 201910
